FAERS Safety Report 7823974-5 (Version None)
Quarter: 2011Q4

REPORT INFORMATION
  Report Type: 
  Country: None (occurrence: None)
  Receive Date: 20111019
  Receipt Date: 20111018
  Transmission Date: 20120403
  Serious: Yes (Death)
  Sender: FDA-Public Use
  Company Number: JP-EISAI INC-E2020-09857-CLI-JP

PATIENT
  Age: 91 Year
  Sex: Male

DRUGS (6)
  1. GRAMALIL [Concomitant]
     Route: 048
     Dates: start: 20100921, end: 20110920
  2. ROZEREM [Concomitant]
     Indication: DEMENTIA ALZHEIMER'S TYPE
     Dosage: 1 DF X1
     Route: 048
     Dates: start: 20110412, end: 20110920
  3. ARICEPT [Suspect]
     Indication: DEMENTIA ALZHEIMER'S TYPE
     Route: 048
     Dates: start: 20101005, end: 20110920
  4. LANSOPRAZOLE [Concomitant]
     Indication: GASTROOESOPHAGEAL REFLUX DISEASE
     Route: 048
     Dates: start: 20110121, end: 20110920
  5. DIOVAN [Concomitant]
     Route: 048
     Dates: start: 20100323, end: 20110111
  6. HALOPERIDOL [Concomitant]
     Indication: DEMENTIA ALZHEIMER'S TYPE
     Route: 048
     Dates: start: 20110426, end: 20110920

REACTIONS (1)
  - DECREASED APPETITE [None]
